FAERS Safety Report 9368581 (Version 1)
Quarter: 2013Q2

REPORT INFORMATION
  Report Type: Spontaneous
  Country: US (occurrence: US)
  Receive Date: 20130626
  Receipt Date: 20130626
  Transmission Date: 20140414
  Serious: Yes (Hospitalization, Other)
  Sender: FDA-Public Use
  Company Number: US-AMGEN-USASP2011017778

PATIENT
  Age: 59 Year
  Sex: Female

DRUGS (3)
  1. ENBREL [Suspect]
     Indication: RHEUMATOID ARTHRITIS
     Dosage: 50 MG, QWK
     Route: 065
     Dates: start: 2006
  2. TREXALL [Concomitant]
     Dosage: 1 MG, QWK
     Dates: start: 1991
  3. TREXALL [Concomitant]
     Dosage: UNK, 4 TO 6 TABLETS A WEEK

REACTIONS (10)
  - Bladder cancer [Unknown]
  - Depression [Not Recovered/Not Resolved]
  - Nephrolithiasis [Unknown]
  - Sinus polyp [Recovered/Resolved]
  - Rheumatoid arthritis [Not Recovered/Not Resolved]
  - Gait disturbance [Not Recovered/Not Resolved]
  - Poor quality sleep [Not Recovered/Not Resolved]
  - Pyrexia [Recovered/Resolved]
  - Wound [Recovered/Resolved]
  - Sinusitis [Recovered/Resolved]
